FAERS Safety Report 5340306-5 (Version None)
Quarter: 2007Q2

REPORT INFORMATION
  Report Type: 
  Country: None (occurrence: None)
  Receive Date: 20070531
  Receipt Date: 20070523
  Transmission Date: 20071010
  Serious: Yes (Other)
  Sender: FDA-Public Use
  Company Number: GB-ROCHE-499646

PATIENT
  Age: 80 Year
  Sex: Male
  Weight: 95 kg

DRUGS (7)
  1. XENICAL [Suspect]
     Indication: OBESITY
     Route: 048
     Dates: start: 20061121, end: 20070523
  2. INSULIN [Concomitant]
     Route: 058
  3. LEVEMIR [Concomitant]
  4. RAMIPRIL [Concomitant]
  5. FRUSEMIDE [Concomitant]
  6. SIMVASTATIN [Concomitant]
  7. ASPIRIN [Concomitant]

REACTIONS (1)
  - RENAL FAILURE CHRONIC [None]
